FAERS Safety Report 14446012 (Version 2)
Quarter: 2018Q1

REPORT INFORMATION
  Report Type: Report from Study
  Country: GB (occurrence: GB)
  Receive Date: 20180126
  Receipt Date: 20180216
  Transmission Date: 20180509
  Serious: Yes (Hospitalization, Other)
  Sender: FDA-Public Use
  Company Number: GB-BRISTOL-MYERS SQUIBB COMPANY-BMS-2018-005539

PATIENT
  Age: 26 Year
  Sex: Male

DRUGS (8)
  1. HYDROCORTISONE                     /00028602/ [Concomitant]
     Active Substance: HYDROCORTISONE
     Indication: PRODUCT USED FOR UNKNOWN INDICATION
     Dosage: UNK
     Route: 065
     Dates: start: 20180108, end: 20180108
  2. NIVOLUMAB [Suspect]
     Active Substance: NIVOLUMAB
     Indication: NEOPLASM MALIGNANT
     Dosage: 360 MG, UNK
     Route: 042
     Dates: start: 20171127
  3. MUCAINE                            /00115701/ [Concomitant]
     Indication: PRODUCT USED FOR UNKNOWN INDICATION
     Dosage: UNK
     Route: 065
     Dates: start: 20171130
  4. NKTR-214 [Suspect]
     Active Substance: INVESTIGATIONAL PRODUCT
     Indication: NEOPLASM MALIGNANT
     Dosage: 0.57 MG, UNK
     Route: 042
     Dates: start: 20171127
  5. THYROXINE [Concomitant]
     Active Substance: LEVOTHYROXINE
     Indication: PRODUCT USED FOR UNKNOWN INDICATION
     Dosage: UNK
     Route: 065
     Dates: start: 20171125
  6. SALBUTAMOL [Concomitant]
     Active Substance: ALBUTEROL
     Indication: PRODUCT USED FOR UNKNOWN INDICATION
     Dosage: UNK
     Route: 065
     Dates: start: 201708
  7. COCODAMOL [Concomitant]
     Active Substance: ACETAMINOPHEN\CODEINE PHOSPHATE
     Indication: PRODUCT USED FOR UNKNOWN INDICATION
     Dosage: UNK
     Route: 065
     Dates: start: 20171207
  8. CHLORPHENAMINE [Concomitant]
     Active Substance: CHLORPHENIRAMINE MALEATE
     Indication: PRODUCT USED FOR UNKNOWN INDICATION
     Dosage: UNK
     Route: 065
     Dates: start: 20171128

REACTIONS (1)
  - Tumour pain [Recovered/Resolved]

NARRATIVE: CASE EVENT DATE: 20180110
